FAERS Safety Report 13990394 (Version 2)
Quarter: 2017Q3

REPORT INFORMATION
  Report Type: Report from Study
  Country: IT (occurrence: IT)
  Receive Date: 20170920
  Receipt Date: 20170927
  Transmission Date: 20171128
  Serious: Yes (Death, Other)
  Sender: FDA-Public Use
  Company Number: IT-CELGENEUS-ITA-20170902958

PATIENT

DRUGS (4)
  1. MELPHALAN. [Concomitant]
     Active Substance: MELPHALAN
     Indication: PLASMA CELL MYELOMA
     Dosage: 0.18 MG/KG
     Route: 065
  2. REVLIMID [Suspect]
     Active Substance: LENALIDOMIDE
     Indication: PLASMA CELL MYELOMA
     Dosage: 10 MG
     Route: 048
  3. ACETYLSALICYLIC ACID [Concomitant]
     Active Substance: ASPIRIN
     Indication: ANTICOAGULANT THERAPY
     Dosage: 100 MILLIGRAM
     Route: 065
  4. PREDNISOLONE. [Concomitant]
     Active Substance: PREDNISOLONE
     Indication: PLASMA CELL MYELOMA
     Dosage: 2 MG/KG
     Route: 065

REACTIONS (14)
  - Thrombocytopenia [Unknown]
  - Febrile neutropenia [Unknown]
  - Haematotoxicity [Unknown]
  - Plasma cell myeloma [Fatal]
  - Death [Fatal]
  - Skin toxicity [Unknown]
  - Osteonecrosis of jaw [Unknown]
  - Vasculitis [Unknown]
  - Deep vein thrombosis [Unknown]
  - Infection [Unknown]
  - Adverse event [Unknown]
  - Embolism [Unknown]
  - Neutropenia [Unknown]
  - Pneumonia [Unknown]
